FAERS Safety Report 4366247-8 (Version None)
Quarter: 2004Q2

REPORT INFORMATION
  Report Type: 
  Country: None (occurrence: None)
  Receive Date: 20040527
  Receipt Date: 20040519
  Transmission Date: 20050107
  Serious: Yes (Hospitalization)
  Sender: FDA-Public Use
  Company Number: FR-JNJFOC-20040504053

PATIENT
  Age: 91 Year
  Sex: Male

DRUGS (8)
  1. IXPRIM [Suspect]
     Route: 049
  2. IXPRIM [Suspect]
     Indication: DRUG USE FOR UNKNOWN INDICATION
     Route: 049
  3. DIPROSONE [Suspect]
     Indication: DRUG USE FOR UNKNOWN INDICATION
     Route: 003
  4. KARDEGIC [Suspect]
     Indication: DRUG USE FOR UNKNOWN INDICATION
     Route: 049
  5. FUROSEMIDE [Suspect]
     Indication: DRUG USE FOR UNKNOWN INDICATION
     Route: 049
  6. SYMBICORT [Suspect]
     Route: 045
  7. SYMBICORT [Suspect]
     Indication: DRUG USE FOR UNKNOWN INDICATION
     Route: 045
  8. MEDIATENSYL [Suspect]
     Indication: DRUG USE FOR UNKNOWN INDICATION
     Route: 049

REACTIONS (8)
  - CONSTIPATION [None]
  - DRUG INTERACTION [None]
  - FALL [None]
  - HAEMATOMA [None]
  - PROTHROMBIN LEVEL DECREASED [None]
  - RENAL FAILURE ACUTE [None]
  - RESPIRATORY ALKALOSIS [None]
  - RHABDOMYOLYSIS [None]
